FAERS Safety Report 5153785-3 (Version None)
Quarter: 2006Q4

REPORT INFORMATION
  Report Type: 
  Country: None (occurrence: None)
  Receive Date: 20061120
  Receipt Date: 20061019
  Transmission Date: 20070319
  Serious: Yes (Hospitalization, Other)
  Sender: FDA-Public Use
  Company Number: PHBS2006JP16453

PATIENT
  Age: 71 Year
  Sex: Male

DRUGS (13)
  1. NORVASC [Suspect]
     Indication: HYPERTENSION
     Dosage: 5 MG/DAY
     Route: 048
     Dates: start: 19960126, end: 19970416
  2. NORVASC [Suspect]
     Dosage: 10 MG/DAY
     Route: 048
     Dates: start: 19970417, end: 20031104
  3. NORVASC [Suspect]
     Dosage: 5 MG/DAY
     Route: 048
     Dates: start: 20031105
  4. MICARDIS [Suspect]
     Indication: HYPERTENSION
     Dosage: 40 MG/DAY
     Route: 048
     Dates: start: 20040319, end: 20060414
  5. ATENDAL [Suspect]
     Indication: HYPERTENSION
     Dates: start: 20040427
  6. ATENDAL [Suspect]
     Dosage: 50 MG/DAY
     Route: 048
     Dates: start: 20040319, end: 20060414
  7. NATRIX [Concomitant]
     Indication: HYPERTENSION
     Dosage: 1 MG/DAY
     Route: 048
     Dates: start: 20031105, end: 20040319
  8. NU-LOTAN [Concomitant]
     Indication: HYPERTENSION
     Dosage: 50 MG/DAY
     Route: 048
     Dates: start: 20060415, end: 20060427
  9. TOWAMIN [Concomitant]
     Indication: HYPERTENSION
     Dosage: 25 MG/DAY
     Route: 048
     Dates: start: 20060415, end: 20060427
  10. DIART [Concomitant]
     Dosage: 30 MG/DAY
     Route: 048
     Dates: start: 20040422
  11. ASPARA K [Concomitant]
     Dates: start: 20040422
  12. CIBACEN [Suspect]
     Indication: HYPERTENSION
     Dosage: 5 MG/DAY
     Route: 048
     Dates: start: 19980629, end: 20040318
  13. CIBACEN [Suspect]
     Dosage: 5 MG/DAY
     Route: 048
     Dates: start: 20040427

REACTIONS (5)
  - BLOOD PRESSURE INADEQUATELY CONTROLLED [None]
  - MYALGIA [None]
  - OEDEMA PERIPHERAL [None]
  - PAIN [None]
  - RHABDOMYOLYSIS [None]
